FAERS Safety Report 8210069-4 (Version None)
Quarter: 2012Q1

REPORT INFORMATION
  Report Type: 
  Country: None (occurrence: None)
  Receive Date: 20120314
  Receipt Date: 20110705
  Transmission Date: 20120608
  Serious: No
  Sender: FDA-Public Use
  Company Number: US-ASTRAZENECA-2010SE30057

PATIENT
  Age: 53 Year
  Sex: Female

DRUGS (5)
  1. TOPROL-XL [Suspect]
     Dosage: 3 PER DAY
     Route: 048
  2. TOPROL-XL [Suspect]
     Route: 048
  3. TOPROL-XL [Suspect]
     Route: 048
  4. TOPROL-XL [Suspect]
     Dosage: 2 PER DAY
     Route: 048
  5. METOPROLOL SUCCINATE [Suspect]
     Route: 065

REACTIONS (3)
  - CHEST PAIN [None]
  - DRUG HYPERSENSITIVITY [None]
  - INCORRECT DOSE ADMINISTERED [None]
